FAERS Safety Report 5369533-8 (Version None)
Quarter: 2007Q2

REPORT INFORMATION
  Report Type: 
  Country: None (occurrence: None)
  Receive Date: 20070625
  Receipt Date: 20070620
  Transmission Date: 20071010
  Serious: Yes (Hospitalization)
  Sender: FDA-Public Use
  Company Number: B0474830B

PATIENT

DRUGS (7)
  1. EPIVIR [Suspect]
     Indication: HIV INFECTION
  2. RETROVIR [Suspect]
     Indication: HIV INFECTION
  3. EPIVIR [Suspect]
     Indication: ANTIVIRAL PROPHYLAXIS
     Route: 048
  4. RETROVIR [Suspect]
     Indication: ANTIVIRAL PROPHYLAXIS
     Route: 048
  5. MORPHINE [Suspect]
  6. VIRACEPT [Suspect]
     Indication: HIV INFECTION
  7. VIRACEPT [Suspect]
     Indication: ANTIVIRAL PROPHYLAXIS
     Route: 048

REACTIONS (8)
  - ABDOMINAL DISTENSION [None]
  - AGITATION [None]
  - BODY TEMPERATURE INCREASED [None]
  - DRUG EXPOSURE DURING PREGNANCY [None]
  - FAECALOMA [None]
  - FEEDING DISORDER NEONATAL [None]
  - OVERDOSE [None]
  - SNEEZING [None]
